FAERS Safety Report 8165864-7 (Version None)
Quarter: 2012Q1

REPORT INFORMATION
  Report Type: 
  Country: None (occurrence: None)
  Receive Date: 20120227
  Receipt Date: 20111109
  Transmission Date: 20120608
  Serious: No
  Sender: FDA-Public Use
  Company Number: US-MYLANLABS-2011S1022206

PATIENT
  Sex: Male
  Weight: 97.52 kg

DRUGS (2)
  1. AMNESTEEM [Suspect]
     Indication: ACNE
     Dates: end: 20110928
  2. CLARAVIS [Suspect]
     Indication: ACNE
     Route: 048
     Dates: start: 20110613

REACTIONS (4)
  - LIVER FUNCTION TEST ABNORMAL [None]
  - IRRITABILITY [None]
  - MYALGIA [None]
  - MALAISE [None]
